FAERS Safety Report 12614808 (Version 3)
Quarter: 2016Q3

REPORT INFORMATION
  Report Type: Spontaneous
  Country: PL (occurrence: PL)
  Receive Date: 20160802
  Receipt Date: 20160909
  Transmission Date: 20161109
  Serious: Yes (Death, Hospitalization)
  Sender: FDA-Public Use
  Company Number: PL-SA-2016SA137195

PATIENT
  Age: 6 Month
  Sex: Female
  Weight: 4.4 kg

DRUGS (2)
  1. LUMINAL [Concomitant]
     Active Substance: PHENOBARBITAL SODIUM
  2. MYOZYME [Suspect]
     Active Substance: ALGLUCOSIDASE ALFA
     Indication: GLYCOGEN STORAGE DISEASE TYPE II
     Route: 041
     Dates: start: 20160422, end: 20160715

REACTIONS (3)
  - Cardiac failure [Fatal]
  - Drug ineffective [Unknown]
  - Hypertrophic cardiomyopathy [Unknown]

NARRATIVE: CASE EVENT DATE: 20160719
